FAERS Safety Report 10477761 (Version 2)
Quarter: 2014Q3

REPORT INFORMATION
  Report Type: Spontaneous
  Country: US (occurrence: US)
  Receive Date: 20140926
  Receipt Date: 20140926
  Transmission Date: 20150326
  Serious: Yes (Hospitalization, Other)
  Sender: FDA-Public Use
  Company Number: US-RECKITT BENCKISER PHARMACEUTICAL, INC-RB-63772-2014

PATIENT
  Age: 52 Year
  Sex: Male

DRUGS (15)
  1. SUBOXONE [Suspect]
     Active Substance: BUPRENORPHINE HYDROCHLORIDE\NALOXONE HYDROCHLORIDE
     Dosage: SUBOXONE FILM; 2 TO 8 MG IN THE A.M. AND 1 TO 8 MG IN THE P.M.
     Route: 060
     Dates: start: 201401, end: 20140112
  2. PERCOCET [Suspect]
     Active Substance: ACETAMINOPHEN\OXYCODONE HYDROCHLORIDE
     Indication: DRUG DEPENDENCE
     Dosage: UNKNOWN DOSING DETAILS
     Route: 048
     Dates: start: 201306, end: 20140218
  3. MARIJUANA [Suspect]
     Active Substance: CANNABIS SATIVA SUBSP. INDICA TOP
     Indication: SUBSTANCE USE
  4. COCAINE [Suspect]
     Active Substance: COCAINE
     Indication: SUBSTANCE USE
     Dosage: UNKNOWN DOSING DETAILS
     Route: 045
     Dates: end: 20140218
  5. SUBOXONE [Suspect]
     Active Substance: BUPRENORPHINE HYDROCHLORIDE\NALOXONE HYDROCHLORIDE
     Indication: DRUG DEPENDENCE
     Dosage: SUBOXONE FILM; TAPERING AND TAKING 1/4 TO 1/2 OF THE FILM INTERMITTENTLY FOR WITHDRAWAL FROM OPIOIDS
     Route: 060
     Dates: start: 201306, end: 201312
  6. SUBOXONE [Suspect]
     Active Substance: BUPRENORPHINE HYDROCHLORIDE\NALOXONE HYDROCHLORIDE
     Dosage: SUBOXONE FILM; TOOK THE LAST DOSE (1/2 OF THE FILM)
     Route: 060
     Dates: start: 20140218, end: 20140218
  7. PERCOCET [Suspect]
     Active Substance: ACETAMINOPHEN\OXYCODONE HYDROCHLORIDE
     Indication: PAIN
  8. OXYCODONE [Suspect]
     Active Substance: OXYCODONE
     Indication: PAIN
  9. VICODIN [Suspect]
     Active Substance: ACETAMINOPHEN\HYDROCODONE BITARTRATE
     Indication: DRUG DEPENDENCE
     Dosage: UNKNOWN DAILY DOSE
     Route: 048
     Dates: start: 2005, end: 20140218
  10. SUBOXONE [Suspect]
     Active Substance: BUPRENORPHINE HYDROCHLORIDE\NALOXONE HYDROCHLORIDE
     Dosage: SUBOXONE FILM; 2 TO 8 MG IN THE A.M. AND 1 TO 8 MG IN THE P.M.
     Route: 060
     Dates: start: 20140105, end: 201401
  11. PERCOCET [Suspect]
     Active Substance: ACETAMINOPHEN\OXYCODONE HYDROCHLORIDE
     Indication: ILEUS
  12. SUBOXONE [Suspect]
     Active Substance: BUPRENORPHINE HYDROCHLORIDE\NALOXONE HYDROCHLORIDE
     Indication: PAIN
     Dosage: SUBOXONE FILM; TREATMENT WHILE IN DETOX FROM METHADONE
     Route: 060
     Dates: start: 201306, end: 201306
  13. OXYCODONE [Suspect]
     Active Substance: OXYCODONE
     Indication: DRUG DEPENDENCE
     Dosage: UNKNOWN DOSING DETAILS
     Route: 048
     Dates: start: 201312, end: 20140218
  14. VICODIN [Suspect]
     Active Substance: ACETAMINOPHEN\HYDROCODONE BITARTRATE
     Indication: PAIN
  15. MARIJUANA [Suspect]
     Active Substance: CANNABIS SATIVA SUBSP. INDICA TOP
     Indication: DRUG DEPENDENCE
     Dosage: UNKNOWN DOSING DETAILS
     Route: 055
     Dates: end: 20140218

REACTIONS (14)
  - Volvulus [Recovered/Resolved]
  - Condition aggravated [Not Recovered/Not Resolved]
  - Arthralgia [Not Recovered/Not Resolved]
  - Detoxification [Recovered/Resolved]
  - Drug abuse [Recovered/Resolved]
  - Intentional underdose [Recovered/Resolved]
  - Musculoskeletal pain [Not Recovered/Not Resolved]
  - Ileus [Recovered/Resolved]
  - Dizziness postural [Not Recovered/Not Resolved]
  - Abdominal pain upper [Recovered/Resolved]
  - Intentional product misuse [Recovered/Resolved]
  - Drug withdrawal syndrome [Recovered/Resolved]
  - Wrong technique in drug usage process [Recovered/Resolved]
  - Drug dependence [Recovered/Resolved]

NARRATIVE: CASE EVENT DATE: 2013
